FAERS Safety Report 11902354 (Version 4)
Quarter: 2016Q1

REPORT INFORMATION
  Report Type: Report from Study
  Country: US (occurrence: US)
  Receive Date: 20160108
  Receipt Date: 20160111
  Transmission Date: 20160526
  Serious: No
  Sender: FDA-Public Use
  Company Number: US-ABBVIE-15P-163-1483170-00

PATIENT
  Age: 54 Year
  Sex: Female
  Weight: 78.54 kg

DRUGS (2)
  1. VIEKIRA PAK [Suspect]
     Active Substance: DASABUVIR\OMBITASVIR\PARITAPREVIR\RITONAVIR
     Indication: HEPATITIS C
     Dosage: PER MANUFACTURER PACKAGE DIRECTIONS IN AM AND PM, WEEKLY PACK 28^S
     Route: 048
     Dates: start: 20150618
  2. LEVEMIR [Concomitant]
     Active Substance: INSULIN DETEMIR
     Indication: PRODUCT USED FOR UNKNOWN INDICATION

REACTIONS (3)
  - Blister [Unknown]
  - Oral discomfort [Unknown]
  - Inappropriate schedule of drug administration [Unknown]

NARRATIVE: CASE EVENT DATE: 20151005
